FAERS Safety Report 5322289-7 (Version None)
Quarter: 2007Q2

REPORT INFORMATION
  Report Type: 
  Country: None (occurrence: None)
  Receive Date: 20070511
  Receipt Date: 20070510
  Transmission Date: 20071010
  Serious: Yes (Disabling)
  Sender: FDA-Public Use
  Company Number: B0461290A

PATIENT
  Age: 38 Year
  Sex: Female

DRUGS (1)
  1. IMIGRAN [Suspect]
     Indication: MIGRAINE
     Dosage: 50MG TWICE PER DAY
     Route: 048
     Dates: start: 20060615

REACTIONS (4)
  - ABORTION [None]
  - ASTHENIA [None]
  - HEMIPLEGIA [None]
  - HYPOAESTHESIA [None]
